FAERS Safety Report 9297803 (Version 1)
Quarter: 2013Q2

REPORT INFORMATION
  Report Type: Spontaneous
  Country: GB (occurrence: GB)
  Receive Date: 20130520
  Receipt Date: 20130520
  Transmission Date: 20140414
  Serious: Yes (Hospitalization, Other)
  Sender: FDA-Public Use
  Company Number: GB-SUN PHARMACEUTICAL INDUSTRIES LTD-2013SUN00597

PATIENT
  Sex: Male
  Weight: 2.69 kg

DRUGS (7)
  1. OLANZAPINE 10 MG TABLETS [Suspect]
     Indication: BIPOLAR DISORDER
     Dosage: 10 MG, OD
     Route: 064
  2. OLANZAPINE 10 MG TABLETS [Suspect]
     Dosage: 15 MG, OD
     Route: 064
  3. OLANZAPINE 10 MG TABLETS [Suspect]
     Dosage: 20 MG, OD
     Route: 064
  4. SODIUM VALPROATE [Concomitant]
     Indication: BIPOLAR DISORDER
     Dosage: 1000 MG, OD
     Route: 064
  5. PROMETHAZINE [Concomitant]
     Dosage: 25 MG, QID
     Route: 064
  6. DIAZEPAM [Concomitant]
     Dosage: 5 MG, TID, PRN FOR 8 WEEKS
     Route: 064
  7. LITHIUM [Concomitant]
     Dosage: 400 MG, BID
     Route: 064

REACTIONS (7)
  - Hyperinsulinism [Recovered/Resolved]
  - Hypoglycaemia neonatal [Recovered/Resolved]
  - Metabolic acidosis [Recovered/Resolved]
  - Foetal growth restriction [Unknown]
  - Small for dates baby [Unknown]
  - Maternal drugs affecting foetus [None]
  - Caesarean section [None]
